FAERS Safety Report 14871719 (Version 5)
Quarter: 2019Q1

REPORT INFORMATION
  Report Type: Spontaneous
  Country: CZ (occurrence: CZ)
  Receive Date: 20180509
  Receipt Date: 20190227
  Transmission Date: 20190417
  Serious: Yes (Hospitalization, Disabling, Other)
  Sender: FDA-Public Use
  Company Number: CZ-ELI_LILLY_AND_COMPANY-CZ201805002574

PATIENT
  Age: 69 Year
  Sex: Male

DRUGS (4)
  1. FLUOROURACIL. [Suspect]
     Active Substance: FLUOROURACIL
     Indication: RECTAL CANCER STAGE IV
     Dosage: UNK UNK, UNKNOWN
     Route: 042
     Dates: start: 20160113, end: 201606
  2. FOLINIC ACID [Suspect]
     Active Substance: LEUCOVORIN
     Indication: RECTAL CANCER STAGE IV
     Dosage: UNK UNK, UNKNOWN
     Route: 042
     Dates: start: 20160113, end: 201606
  3. ERBITUX [Suspect]
     Active Substance: CETUXIMAB
     Indication: RECTAL CANCER STAGE IV
     Dosage: UNK, UNKNOWN
     Route: 065
     Dates: start: 201601, end: 201606
  4. OXALIPLATIN. [Suspect]
     Active Substance: OXALIPLATIN
     Indication: RECTAL CANCER STAGE IV
     Dosage: UNK UNK, UNKNOWN
     Route: 042
     Dates: start: 20160113, end: 201606

REACTIONS (9)
  - Rash [Unknown]
  - Neutropenia [Recovered/Resolved]
  - Hypomagnesaemia [Recovered/Resolved]
  - Dermatitis acneiform [Recovered/Resolved]
  - Paraesthesia [Recovered/Resolved]
  - Neutropenia [Unknown]
  - Femoral neck fracture [Recovered/Resolved]
  - Skin fissures [Unknown]
  - Skin toxicity [Recovered/Resolved]

NARRATIVE: CASE EVENT DATE: 2016
